FAERS Safety Report 24162086 (Version 1)
Quarter: 2024Q3

REPORT INFORMATION
  Report Type: Spontaneous
  Country: PL (occurrence: PL)
  Receive Date: 20240801
  Receipt Date: 20240801
  Transmission Date: 20241017
  Serious: Yes (Hospitalization)
  Sender: ORGANON
  Company Number: None

PATIENT
  Sex: Female

DRUGS (1)
  1. ETONOGESTREL [Suspect]
     Active Substance: ETONOGESTREL
     Dosage: 1 IMPLANT (68 MG)
     Route: 058
     Dates: start: 20200222, end: 20200222

REACTIONS (4)
  - Wound complication [Unknown]
  - Wound infection [Unknown]
  - Wound complication [Unknown]
  - Impaired healing [Unknown]

NARRATIVE: CASE EVENT DATE: 20200222
